FAERS Safety Report 5800725-7 (Version None)
Quarter: 2008Q3

REPORT INFORMATION
  Report Type: 
  Country: None (occurrence: None)
  Receive Date: 20080703
  Receipt Date: 20080623
  Transmission Date: 20090109
  Serious: Yes (Death, Hospitalization)
  Sender: FDA-Public Use
  Company Number: PR-ABBOTT-08P-131-0460226-00

PATIENT
  Sex: Male

DRUGS (2)
  1. TARKA [Suspect]
     Indication: DRUG USE FOR UNKNOWN INDICATION
     Dates: start: 20061201
  2. ANTIBIOTICS [Suspect]
     Indication: SKIN DISORDER
     Dates: start: 20061201

REACTIONS (2)
  - CARDIAC FAILURE CONGESTIVE [None]
  - SKIN DISORDER [None]
